FAERS Safety Report 6703057-8 (Version None)
Quarter: 2010Q2

REPORT INFORMATION
  Report Type: 
  Country: None (occurrence: None)
  Receive Date: 20100428
  Receipt Date: 20100414
  Transmission Date: 20101027
  Serious: Yes (Hospitalization, Disabling, Other)
  Sender: FDA-Public Use
  Company Number: A-CH2010-34353

PATIENT
  Age: 70 Year
  Sex: Male
  Weight: 95 kg

DRUGS (10)
  1. TRACLEER [Suspect]
     Indication: PULMONARY HYPERTENSION
     Dosage: 62.5 MG, BID, ORAL, 125 MG, BID, ORAL
     Route: 048
     Dates: start: 20091208, end: 20100104
  2. TRACLEER [Suspect]
     Indication: PULMONARY HYPERTENSION
     Dosage: 62.5 MG, BID, ORAL, 125 MG, BID, ORAL
     Route: 048
     Dates: start: 20100105, end: 20100119
  3. SPIRIVA [Concomitant]
  4. COVERSUM (PERINDOPRIL) [Concomitant]
  5. NORVASC [Concomitant]
  6. NITRODERM [Concomitant]
  7. ATORVASTATIN CALCIUM [Concomitant]
  8. ASPIRIN [Concomitant]
  9. CITALOPRAM HYDROBROMIDE [Concomitant]
  10. AMLODIPINE BESYLATE [Concomitant]

REACTIONS (7)
  - CEREBRAL ISCHAEMIA [None]
  - GAIT DISTURBANCE [None]
  - INFLAMMATION [None]
  - MONONEUROPATHY MULTIPLEX [None]
  - MYOCLONUS [None]
  - NEUROPATHY PERIPHERAL [None]
  - VASCULITIS [None]
